FAERS Safety Report 7557503-0 (Version None)
Quarter: 2011Q2

REPORT INFORMATION
  Report Type: 
  Country: None (occurrence: None)
  Receive Date: 20110620
  Receipt Date: 20110610
  Transmission Date: 20111010
  Serious: Yes (Hospitalization, Other)
  Sender: FDA-Public Use
  Company Number: US-JNJFOC-20110606155

PATIENT
  Sex: Male
  Weight: 77.11 kg

DRUGS (2)
  1. INSULIN [Concomitant]
     Indication: DIABETES MELLITUS
     Route: 058
     Dates: start: 20110501
  2. LEVAQUIN [Suspect]
     Indication: PNEUMONIA
     Route: 048
     Dates: start: 20110501, end: 20110501

REACTIONS (4)
  - SKIN DISORDER [None]
  - TENDON PAIN [None]
  - OEDEMA PERIPHERAL [None]
  - WEIGHT DECREASED [None]
